FAERS Safety Report 5350013-0 (Version None)
Quarter: 2007Q2

REPORT INFORMATION
  Report Type: 
  Country: None (occurrence: None)
  Receive Date: 20070510
  Receipt Date: 20070206
  Transmission Date: 20071010
  Serious: Yes (Other)
  Sender: FDA-Public Use
  Company Number: 2007S1000084

PATIENT
  Age: 57 Year
  Sex: Male
  Weight: 182 kg

DRUGS (17)
  1. CUBICIN [Suspect]
     Indication: CELLULITIS STAPHYLOCOCCAL
     Dosage: 730 MG; Q24H; IV
     Route: 042
     Dates: start: 20061230, end: 20070112
  2. PIOGLITAZONE [Concomitant]
  3. REPAGLINIDE [Concomitant]
  4. CLONIDINE [Concomitant]
  5. ESOMEPRAZOLE MAGNESIUM [Concomitant]
  6. PLENDIL [Concomitant]
  7. HYDRALAZINE HCL [Concomitant]
  8. INSULIN [Concomitant]
  9. METFORMIN HCL [Concomitant]
  10. LOPRESSOR [Concomitant]
  11. DARVOCET /00758701/ [Concomitant]
  12. METAMUCIL /01430601/ [Concomitant]
  13. CIPROFLOXACIN [Concomitant]
  14. METRONIDAZOLE [Concomitant]
  15. LINEZOLID [Concomitant]
  16. VANCOMYCIN HCL [Concomitant]
  17. AZTREONAM [Concomitant]

REACTIONS (1)
  - RHABDOMYOLYSIS [None]
